FAERS Safety Report 9779098 (Version 2)
Quarter: 2013Q4

REPORT INFORMATION
  Report Type: Spontaneous
  Country: CA (occurrence: CA)
  Receive Date: 20131223
  Receipt Date: 20131223
  Transmission Date: 20140711
  Serious: Yes (Other)
  Sender: FDA-Public Use
  Company Number: CA-ELI_LILLY_AND_COMPANY-CA201202000715

PATIENT
  Age: 60 Year
  Sex: Male

DRUGS (7)
  1. STRATTERA [Suspect]
     Indication: ATTENTION DEFICIT/HYPERACTIVITY DISORDER
     Dosage: 40 MG, UNK
     Dates: start: 201109
  2. STRATTERA [Suspect]
     Dosage: 60 MG, UNK
  3. STRATTERA [Suspect]
     Dosage: 80 MG, UNK
     Dates: start: 201112, end: 201201
  4. LORAZEPAM [Concomitant]
     Indication: PRODUCT USED FOR UNKNOWN INDICATION
     Dosage: 1 MG, QD
  5. HYDROCHLOROTHIAZIDE [Concomitant]
     Indication: PRODUCT USED FOR UNKNOWN INDICATION
     Dosage: 25 MG, QD
  6. CRESTOR [Concomitant]
     Indication: PRODUCT USED FOR UNKNOWN INDICATION
     Dosage: 5 ML, UNK
  7. WELLBUTRIN XL [Concomitant]
     Indication: PRODUCT USED FOR UNKNOWN INDICATION
     Dosage: 300 MG, UNKNOWN
     Route: 065

REACTIONS (22)
  - Heart rate increased [Unknown]
  - Panic attack [Unknown]
  - Urinary retention [Unknown]
  - Dry mouth [Unknown]
  - Blood pressure increased [Unknown]
  - Drug ineffective [Unknown]
  - Genital pain [Unknown]
  - Anxiety [Unknown]
  - Condition aggravated [Unknown]
  - Drug withdrawal syndrome [Unknown]
  - Panic attack [Unknown]
  - Feeling hot [Unknown]
  - Dry mouth [Unknown]
  - Chills [Unknown]
  - Anger [Unknown]
  - Pain [Unknown]
  - Depression [Unknown]
  - Hot flush [Unknown]
  - Anxiety [Unknown]
  - Blood pressure ambulatory increased [Unknown]
  - Urinary retention [Unknown]
  - Genital pain [Unknown]
